FAERS Safety Report 5107333-4 (Version None)
Quarter: 2006Q3

REPORT INFORMATION
  Report Type: 
  Country: None (occurrence: None)
  Receive Date: 20060914
  Receipt Date: 20060829
  Transmission Date: 20061208
  Serious: Yes (Other)
  Sender: FDA-Public Use
  Company Number: VNL_0195_2006

PATIENT
  Age: 60 Year
  Sex: Male
  Weight: 90.7194 kg

DRUGS (5)
  1. APOKYN [Suspect]
     Indication: PARKINSON'S DISEASE
     Dosage: 0.2 MG QOD; SC
     Route: 058
     Dates: start: 20060811, end: 20060829
  2. CARBIDOPA-LEVADOPA [Concomitant]
  3. PERGOLIDE MESYL [Concomitant]
  4. COMTAN [Concomitant]
  5. DETROL LA [Concomitant]

REACTIONS (1)
  - CEREBROVASCULAR ACCIDENT [None]
